FAERS Safety Report 17971970 (Version 3)
Quarter: 2020Q4

REPORT INFORMATION
  Report Type: Spontaneous
  Country: JP (occurrence: JP)
  Receive Date: 20200701
  Receipt Date: 20201027
  Transmission Date: 20210113
  Serious: Yes (Life-Threatening, Hospitalization, Other)
  Sender: FDA-Public Use
  Company Number: JP-BRISTOL-MYERS SQUIBB COMPANY-BMS-2020-050907

PATIENT
  Age: 75 Year
  Sex: Male

DRUGS (2)
  1. YERVOY [Suspect]
     Active Substance: IPILIMUMAB
     Indication: OESOPHAGEAL CARCINOMA
     Route: 041
  2. OPDIVO [Suspect]
     Active Substance: NIVOLUMAB
     Indication: OESOPHAGEAL CARCINOMA
     Route: 041

REACTIONS (8)
  - Feeding disorder [Unknown]
  - Pharyngeal disorder [Unknown]
  - Depression [Unknown]
  - Malaise [Unknown]
  - Intentional product use issue [Unknown]
  - Hyporeflexia [Unknown]
  - Encephalitis brain stem [Recovering/Resolving]
  - Areflexia [Unknown]
